FAERS Safety Report 4789570-1 (Version None)
Quarter: 2005Q4

REPORT INFORMATION
  Report Type: 
  Country: None (occurrence: None)
  Receive Date: 20051006
  Receipt Date: 20050927
  Transmission Date: 20060501
  Serious: Yes (Hospitalization, Other)
  Sender: FDA-Public Use
  Company Number: PHNR2005AU01467

PATIENT
  Age: 25 Year
  Sex: Male

DRUGS (2)
  1. RISPERIDONE [Concomitant]
  2. CLOZARIL [Suspect]
     Dosage: 12.5-350 MG
     Route: 048
     Dates: start: 20050830, end: 20050927

REACTIONS (5)
  - C-REACTIVE PROTEIN INCREASED [None]
  - MENTAL DISORDER [None]
  - PALPITATIONS [None]
  - SINUS TACHYCARDIA [None]
  - TROPONIN I INCREASED [None]
